FAERS Safety Report 18311604 (Version 1)
Quarter: 2020Q3

REPORT INFORMATION
  Report Type: Spontaneous
  Country: US (occurrence: US)
  Receive Date: 20200924
  Receipt Date: 20200924
  Transmission Date: 20201103
  Serious: No
  Sender: FDA-Public Use
  Company Number: None

PATIENT
  Age: 16 Year
  Sex: Female
  Weight: 45.36 kg

DRUGS (2)
  1. MICROGESTIN 1/20 [Suspect]
     Active Substance: ETHINYL ESTRADIOL\NORETHINDRONE ACETATE
     Indication: DYSMENORRHOEA
     Dosage: ?          QUANTITY:  MONTHLY PK?21TAB;?
     Route: 048
     Dates: start: 20200830, end: 20200919
  2. FLUOXETINE [Concomitant]
     Active Substance: FLUOXETINE HYDROCHLORIDE

REACTIONS (2)
  - Vaginal haemorrhage [None]
  - Product substitution issue [None]

NARRATIVE: CASE EVENT DATE: 20200915
